FAERS Safety Report 5932880-2 (Version None)
Quarter: 2008Q4

REPORT INFORMATION
  Report Type: 
  Country: None (occurrence: None)
  Receive Date: 20081028
  Receipt Date: 20081022
  Transmission Date: 20090506
  Serious: Yes (Other)
  Sender: FDA-Public Use
  Company Number: US-ELI_LILLY_AND_COMPANY-US200810006173

PATIENT
  Sex: Male

DRUGS (12)
  1. HUMALOG [Suspect]
     Dosage: UNK, UNK
     Dates: start: 20000101
  2. HUMALOG [Suspect]
  3. NORVASC [Concomitant]
     Indication: HYPERTENSION
  4. COREG [Concomitant]
     Indication: HYPERTENSION
  5. LISINOPRIL [Concomitant]
     Indication: HYPERTENSION
  6. ALISKIREN [Concomitant]
     Indication: HYPERTENSION
  7. DIOVAN [Concomitant]
     Indication: HYPERTENSION
  8. FLOMAX [Concomitant]
  9. SEPTRA [Concomitant]
     Indication: INJURY
  10. COUMADIN [Concomitant]
     Indication: ATRIAL FIBRILLATION
  11. LIPITOR [Concomitant]
     Indication: ATRIAL FIBRILLATION
  12. PHOSLO [Concomitant]
     Indication: BLOOD PHOSPHORUS

REACTIONS (3)
  - BLOOD GLUCOSE INCREASED [None]
  - CONGENITAL CYSTIC KIDNEY DISEASE [None]
  - INCORRECT DOSE ADMINISTERED [None]
